FAERS Safety Report 13002785 (Version 1)
Quarter: 2016Q4

REPORT INFORMATION
  Report Type: Spontaneous
  Country: US (occurrence: US)
  Receive Date: 20161205
  Receipt Date: 20161205
  Transmission Date: 20170207
  Serious: Yes (Disabling)
  Sender: FDA-Public Use
  Company Number: None

PATIENT
  Age: 24 Year
  Sex: Male
  Weight: 54 kg

DRUGS (1)
  1. GADAVIST [Suspect]
     Active Substance: GADOBUTROL
     Indication: SCAN WITH CONTRAST
     Route: 042
     Dates: start: 20161101, end: 20161101

REACTIONS (11)
  - Asthenia [None]
  - Nausea [None]
  - Urticaria [None]
  - Dry mouth [None]
  - Pruritus [None]
  - Feeling hot [None]
  - Headache [None]
  - Injection site pain [None]
  - Fatigue [None]
  - Dizziness [None]
  - Pallor [None]

NARRATIVE: CASE EVENT DATE: 20161101
